FAERS Safety Report 5026989-8 (Version None)
Quarter: 2006Q2

REPORT INFORMATION
  Report Type: 
  Country: None (occurrence: None)
  Receive Date: 20060609
  Receipt Date: 20060530
  Transmission Date: 20061013
  Serious: Yes (Life-Threatening, Other)
  Sender: FDA-Public Use
  Company Number: 2006059737

PATIENT
  Age: 69 Year
  Sex: Female
  Weight: 67 kg

DRUGS (4)
  1. CABERGOLINE [Suspect]
     Indication: RESTLESS LEGS SYNDROME
     Dosage: ORAL
     Route: 048
     Dates: start: 20010101
  2. L-DOPA (LEVODOPA) [Concomitant]
  3. METOPROLOL SUCCINATE [Concomitant]
  4. CARVEDILOL [Concomitant]

REACTIONS (8)
  - CARDIAC FAILURE [None]
  - COUGH [None]
  - FOREIGN BODY TRAUMA [None]
  - MYOCARDITIS [None]
  - PERICARDIAL EFFUSION [None]
  - PERICARDITIS [None]
  - THYROID GLAND SCAN ABNORMAL [None]
  - VIRAL INFECTION [None]
